FAERS Safety Report 24302364 (Version 1)
Quarter: 2024Q3

REPORT INFORMATION
  Report Type: Spontaneous
  Country: FR (occurrence: FR)
  Receive Date: 20240910
  Receipt Date: 20240910
  Transmission Date: 20241017
  Serious: Yes (Other)
  Sender: BAUSCH AND LOMB
  Company Number: None

PATIENT
  Age: 31 Year
  Sex: Male

DRUGS (5)
  1. DIAZEPAM [Suspect]
     Active Substance: DIAZEPAM
     Indication: Product used for unknown indication
     Route: 065
  2. LORMETAZEPAM [Suspect]
     Active Substance: LORMETAZEPAM
     Indication: Product used for unknown indication
     Route: 065
  3. LOXAPINE [Suspect]
     Active Substance: LOXAPINE
     Indication: Product used for unknown indication
     Route: 065
  4. BUTYROLACTONE [Suspect]
     Active Substance: BUTYROLACTONE
     Indication: Product used for unknown indication
     Route: 065
  5. CITALOPRAM HYDROCHLORIDE [Suspect]
     Active Substance: CITALOPRAM HYDROCHLORIDE
     Indication: Product used for unknown indication
     Route: 065

REACTIONS (4)
  - Altered state of consciousness [Recovered/Resolved]
  - Miosis [Recovered/Resolved]
  - Substance use disorder [Unknown]
  - Drug use disorder [Unknown]

NARRATIVE: CASE EVENT DATE: 20240515
